FAERS Safety Report 25650443 (Version 2)
Quarter: 2025Q3

REPORT INFORMATION
  Report Type: Report from Study
  Country: US (occurrence: US)
  Receive Date: 20250806
  Receipt Date: 20250922
  Transmission Date: 20251021
  Serious: Yes (Other)
  Sender: GILEAD
  Company Number: US-GILEAD-2025-0722824

PATIENT
  Age: 77 Year
  Sex: Female

DRUGS (35)
  1. SELADELPAR [Suspect]
     Active Substance: SELADELPAR
     Indication: Product used for unknown indication
     Dosage: 10 MG PO ONCE DAILY
     Route: 048
     Dates: start: 20250627
  2. OCALIVA [Suspect]
     Active Substance: OBETICHOLIC ACID
     Indication: Primary biliary cholangitis
     Dosage: 5 MG, QD
     Route: 048
     Dates: start: 20211114
  3. OCALIVA [Suspect]
     Active Substance: OBETICHOLIC ACID
     Dosage: 10 MG, QD
     Route: 048
     Dates: start: 20211123
  4. OCALIVA [Suspect]
     Active Substance: OBETICHOLIC ACID
     Dosage: 10 MG, QD
     Route: 048
     Dates: start: 20211123
  5. OCALIVA [Suspect]
     Active Substance: OBETICHOLIC ACID
     Dosage: 10 MG, QD
     Route: 048
     Dates: end: 2024
  6. OCALIVA [Suspect]
     Active Substance: OBETICHOLIC ACID
     Dosage: 10 MG, QD
     Route: 048
     Dates: start: 2024, end: 2025
  7. URSODIOL [Suspect]
     Active Substance: URSODIOL
     Indication: Primary biliary cholangitis
     Dosage: 600 MG, BID
     Route: 048
     Dates: start: 202304
  8. URSODIOL [Suspect]
     Active Substance: URSODIOL
     Route: 048
  9. URSODIOL [Suspect]
     Active Substance: URSODIOL
     Dosage: 600 MG, QD
     Route: 048
  10. URSODIOL [Suspect]
     Active Substance: URSODIOL
     Dosage: 600 MG, BID
     Dates: end: 2025
  11. CALCIUM CARBONATE\MAGNESIUM CARBONATE [Concomitant]
     Active Substance: CALCIUM CARBONATE\MAGNESIUM CARBONATE
  12. VITAMIN B COMPLEX [Concomitant]
     Active Substance: CYANOCOBALAMIN\DEXPANTHENOL\NIACINAMIDE\PYRIDOXINE HYDROCHLORIDE\RIBOFLAVIN 5^-PHOSPHATE SODIUM\THIA
  13. VITAMINS [Concomitant]
     Active Substance: VITAMINS
  14. LEVOTHYROXINE SODIUM [Concomitant]
     Active Substance: LEVOTHYROXINE SODIUM
  15. LATANOPROST [Concomitant]
     Active Substance: LATANOPROST
  16. AMLODIPINE BESYLATE [Concomitant]
     Active Substance: AMLODIPINE BESYLATE
  17. ROSUVASTATIN CALCIUM [Concomitant]
     Active Substance: ROSUVASTATIN CALCIUM
  18. FENOFIBRATE [Concomitant]
     Active Substance: FENOFIBRATE
  19. PANTOPRAZOLE SODIUM [Concomitant]
     Active Substance: PANTOPRAZOLE SODIUM
  20. ALPHA LIPOIC ACID [Concomitant]
     Active Substance: .ALPHA.-LIPOIC ACID
  21. ASCORBIC ACID [Concomitant]
     Active Substance: ASCORBIC ACID
  22. KETOROLAC [Concomitant]
     Active Substance: KETOROLAC TROMETHAMINE
  23. ALBUTEROL SULFATE [Concomitant]
     Active Substance: ALBUTEROL SULFATE
  24. BETHANECHOL [Concomitant]
     Active Substance: BETHANECHOL
  25. ASPIRIN [Concomitant]
     Active Substance: ASPIRIN
  26. ALENDRONATE SODIUM [Concomitant]
     Active Substance: ALENDRONATE SODIUM
  27. ALLERGY RELIEF [DIPHENHYDRAMINE HYDROCHLORIDE] [Concomitant]
  28. FOLIC ACID [Concomitant]
     Active Substance: FOLIC ACID
  29. PROSIGHT [Concomitant]
  30. OXYBUTYNIN [Concomitant]
     Active Substance: OXYBUTYNIN
  31. LEVOFLOXACIN [Concomitant]
     Active Substance: LEVOFLOXACIN
  32. CLARITHROMYCIN [Concomitant]
     Active Substance: CLARITHROMYCIN
  33. DOXYCYCLINE [Concomitant]
     Active Substance: DOXYCYCLINE
  34. CIPROFLOXACIN [Concomitant]
     Active Substance: CIPROFLOXACIN
  35. TIMOLOL MALEATE [Concomitant]
     Active Substance: TIMOLOL MALEATE

REACTIONS (22)
  - Cognitive disorder [Unknown]
  - Dementia [Unknown]
  - Mental impairment [Unknown]
  - Mental fatigue [Unknown]
  - Illness [Not Recovered/Not Resolved]
  - Tachyphrenia [Unknown]
  - Memory impairment [Unknown]
  - Insomnia [Not Recovered/Not Resolved]
  - Repetitive speech [Unknown]
  - Flight of ideas [Unknown]
  - Eating disorder [Unknown]
  - Weight decreased [Unknown]
  - Self-injurious ideation [Unknown]
  - Liver disorder [Not Recovered/Not Resolved]
  - Vomiting [Not Recovered/Not Resolved]
  - Diarrhoea [Not Recovered/Not Resolved]
  - Emotional disorder [Not Recovered/Not Resolved]
  - Head discomfort [Not Recovered/Not Resolved]
  - Appetite disorder [Not Recovered/Not Resolved]
  - Gait disturbance [Not Recovered/Not Resolved]
  - Confusional state [Not Recovered/Not Resolved]
  - Dizziness [Not Recovered/Not Resolved]

NARRATIVE: CASE EVENT DATE: 20250703
